FAERS Safety Report 7003485-X (Version None)
Quarter: 2010Q3

REPORT INFORMATION
  Report Type: 
  Country: None (occurrence: None)
  Receive Date: 20100916
  Receipt Date: 20100903
  Transmission Date: 20110219
  Serious: Yes (Hospitalization)
  Sender: FDA-Public Use
  Company Number: PHHY2010JP39511

PATIENT
  Age: 81 Year
  Sex: Male

DRUGS (11)
  1. VISUDYNE [Suspect]
     Indication: MACULAR DEGENERATION
     Dates: start: 20100522, end: 20100522
  2. VISUDYNE [Suspect]
     Indication: MACULAR DEGENERATION
     Dates: start: 20041001, end: 20091101
  3. LUCENTIS [Suspect]
     Indication: MACULAR DEGENERATION
     Dosage: 0.05 ML DAILY EY
     Dates: start: 20100521, end: 20100521
  4. LUCENTIS [Suspect]
     Indication: MACULAR DEGENERATION
     Dosage: 0.05 ML DAILY EY
     Dates: start: 20100108, end: 20100108
  5. LUCENTIS [Suspect]
     Indication: MACULAR DEGENERATION
     Dosage: 0.05 ML DAILY EY
     Dates: start: 20091204, end: 20091204
  6. LUCENTIS [Suspect]
     Indication: MACULAR DEGENERATION
     Dosage: 0.05 ML DAILY EY
     Dates: start: 20091106, end: 20091106
  7. MOXIFLOXACIN HYDROCHLORIDE [Concomitant]
  8. RINDERON [Concomitant]
  9. SOLANTAL [Concomitant]
  10. FK [Concomitant]
  11. MEIACT [Concomitant]

REACTIONS (3)
  - CEREBELLAR INFARCTION [None]
  - INCONTINENCE [None]
  - LACUNAR INFARCTION [None]
